FAERS Safety Report 12225824 (Version 1)
Quarter: 2016Q1

REPORT INFORMATION
  Report Type: Spontaneous
  Country: US (occurrence: None)
  Receive Date: 20160330
  Receipt Date: 20160330
  Transmission Date: 20160526
  Serious: No
  Sender: FDA-Public Use
  Company Number: None

PATIENT
  Sex: Female

DRUGS (1)
  1. RESTASIS [Suspect]
     Active Substance: CYCLOSPORINE
     Indication: DRY EYE
     Route: 031
     Dates: start: 20160304, end: 20160328

REACTIONS (3)
  - Vision blurred [None]
  - Ocular hyperaemia [None]
  - Eye pain [None]

NARRATIVE: CASE EVENT DATE: 20160328
